FAERS Safety Report 10997601 (Version 2)
Quarter: 2015Q2

REPORT INFORMATION
  Report Type: Spontaneous
  Country: IT (occurrence: IT)
  Receive Date: 20150408
  Receipt Date: 20150417
  Transmission Date: 20150821
  Serious: Yes (Hospitalization, Disabling, Other)
  Sender: FDA-Public Use
  Company Number: IT-NOVOPROD-444528

PATIENT
  Age: 69 Year
  Sex: Female

DRUGS (7)
  1. METFORMIN [Suspect]
     Active Substance: METFORMIN HYDROCHLORIDE
     Indication: TYPE 2 DIABETES MELLITUS
     Dosage: 100 MG, QD
     Route: 048
     Dates: start: 20120208, end: 20120208
  2. DELTACORTENE [Concomitant]
     Active Substance: PREDNISONE
     Indication: POLYMYALGIA RHEUMATICA
     Dosage: 10 TABLETS AT A DOSE OF 0.5 UNIT
     Route: 048
  3. GLUCOBAY [Suspect]
     Active Substance: ACARBOSE
     Indication: TYPE 2 DIABETES MELLITUS
     Dosage: 40 TAB AT A TOTAL DOSE OF 1 DOSAGE UNIT
     Route: 048
     Dates: start: 20120208, end: 20120208
  4. KARVEA [Concomitant]
     Active Substance: IRBESARTAN
     Indication: HYPERTENSION
     Dosage: 28 TABLETS AT A DOSE OF 1 UNIT ORALLY
     Route: 048
  5. NOVONORM [Suspect]
     Active Substance: REPAGLINIDE
     Indication: TYPE 2 DIABETES MELLITUS
     Dosage: 90 TABLETS AT A TOTAL DOSE OF 1 DOSAGE UNIT
     Route: 048
     Dates: start: 20120208, end: 20120208
  6. METOTREXATO                        /00113802/ [Concomitant]
     Indication: OSTEOARTHRITIS
     Dosage: 3 DF, QD
     Route: 048
  7. NORVASC [Concomitant]
     Active Substance: AMLODIPINE BESYLATE
     Indication: HYPERTENSION
     Dosage: 1 DF, QD (28 TAB)
     Route: 048

REACTIONS (4)
  - Paraesthesia [Recovered/Resolved]
  - Hypoglycaemia [Recovered/Resolved]
  - Throat irritation [Recovered/Resolved]
  - Overdose [Unknown]

NARRATIVE: CASE EVENT DATE: 20120208
